FAERS Safety Report 12963480 (Version 1)
Quarter: 2016Q4

REPORT INFORMATION
  Report Type: Spontaneous
  Country: GB (occurrence: GB)
  Receive Date: 20161122
  Receipt Date: 20161122
  Transmission Date: 20170207
  Serious: Yes (Other)
  Sender: FDA-Public Use
  Company Number: GB-AUROBINDO-AUR-APL-2016-14010

PATIENT
  Sex: Female

DRUGS (2)
  1. MIRTAZAPINE 45MG [Suspect]
     Active Substance: MIRTAZAPINE
     Indication: DEPRESSION
     Dosage: 45 MG, ONCE A DAY
     Route: 048
     Dates: start: 20160818
  2. FULTIUM D3 [Concomitant]
     Indication: VITAMIN SUPPLEMENTATION
     Dosage: 800 IU, UNK
     Route: 065

REACTIONS (2)
  - Menstruation delayed [Not Recovered/Not Resolved]
  - Alopecia [Not Recovered/Not Resolved]

NARRATIVE: CASE EVENT DATE: 20160818
